FAERS Safety Report 25883355 (Version 1)
Quarter: 2025Q4

REPORT INFORMATION
  Report Type: Spontaneous
  Country: US (occurrence: US)
  Receive Date: 20251006
  Receipt Date: 20251006
  Transmission Date: 20260118
  Serious: Yes (Other)
  Sender: COOPERSURGICAL
  Company Number: US-COOPERSURGICAL, INC.-2025CPS007070

PATIENT
  Age: 28 Year
  Sex: Female
  Weight: 51.701 kg

DRUGS (1)
  1. PARAGARD T 380A [Suspect]
     Active Substance: COPPER
     Indication: Contraception
     Dosage: UNK
     Route: 015
     Dates: start: 20100624, end: 20160101

REACTIONS (12)
  - Cervical dysplasia [Not Recovered/Not Resolved]
  - Abortion spontaneous [Recovered/Resolved]
  - Pregnancy with contraceptive device [Recovered/Resolved]
  - Drug ineffective [Unknown]
  - Vulvovaginal pruritus [Unknown]
  - Depression [Unknown]
  - Vomiting [Unknown]
  - Vaginal discharge [Unknown]
  - Pelvic pain [Unknown]
  - Dyspareunia [Unknown]
  - Nausea [Unknown]
  - Intermenstrual bleeding [Unknown]

NARRATIVE: CASE EVENT DATE: 20100510
